FAERS Safety Report 25877151 (Version 1)
Quarter: 2025Q4

REPORT INFORMATION
  Report Type: Spontaneous
  Country: EU (occurrence: EU)
  Receive Date: 20251003
  Receipt Date: 20251003
  Transmission Date: 20260118
  Serious: Yes (Other)
  Sender: MYLAN
  Company Number: EU-NEOVII_BIOTECH-2021000077

PATIENT
  Age: 8 Year
  Sex: Female

DRUGS (24)
  1. MYCOPHENOLATE MOFETIL [Suspect]
     Active Substance: MYCOPHENOLATE MOFETIL
     Indication: Prophylaxis against graft versus host disease
     Dosage: UNK
  2. MYCOPHENOLATE MOFETIL [Suspect]
     Active Substance: MYCOPHENOLATE MOFETIL
     Dosage: UNK
     Route: 065
  3. MYCOPHENOLATE MOFETIL [Suspect]
     Active Substance: MYCOPHENOLATE MOFETIL
     Dosage: UNK
     Route: 065
  4. MYCOPHENOLATE MOFETIL [Suspect]
     Active Substance: MYCOPHENOLATE MOFETIL
     Dosage: UNK
  5. FLUDARABINE [Suspect]
     Active Substance: FLUDARABINE PHOSPHATE
     Indication: Allogenic stem cell transplantation
     Dosage: UNK
  6. FLUDARABINE [Suspect]
     Active Substance: FLUDARABINE PHOSPHATE
     Dosage: UNK
     Route: 065
  7. FLUDARABINE [Suspect]
     Active Substance: FLUDARABINE PHOSPHATE
     Dosage: UNK
     Route: 065
  8. FLUDARABINE [Suspect]
     Active Substance: FLUDARABINE PHOSPHATE
     Dosage: UNK
  9. LAPINE T-LYMPHOCYTE IMMUNE GLOBULIN [Suspect]
     Active Substance: LAPINE T-LYMPHOCYTE IMMUNE GLOBULIN
     Indication: Prophylaxis against graft versus host disease
     Dosage: 15 MILLIGRAM/KILOGRAM
  10. LAPINE T-LYMPHOCYTE IMMUNE GLOBULIN [Suspect]
     Active Substance: LAPINE T-LYMPHOCYTE IMMUNE GLOBULIN
     Indication: Bone marrow transplant
     Dosage: 15 MILLIGRAM/KILOGRAM
     Route: 065
  11. LAPINE T-LYMPHOCYTE IMMUNE GLOBULIN [Suspect]
     Active Substance: LAPINE T-LYMPHOCYTE IMMUNE GLOBULIN
     Indication: Allogenic stem cell transplantation
     Dosage: 15 MILLIGRAM/KILOGRAM
     Route: 065
  12. LAPINE T-LYMPHOCYTE IMMUNE GLOBULIN [Suspect]
     Active Substance: LAPINE T-LYMPHOCYTE IMMUNE GLOBULIN
     Dosage: 15 MILLIGRAM/KILOGRAM
  13. THIOTEPA [Suspect]
     Active Substance: THIOTEPA
     Indication: Allogenic stem cell transplantation
     Dosage: UNK
  14. THIOTEPA [Suspect]
     Active Substance: THIOTEPA
     Dosage: UNK
     Route: 065
  15. THIOTEPA [Suspect]
     Active Substance: THIOTEPA
     Dosage: UNK
     Route: 065
  16. THIOTEPA [Suspect]
     Active Substance: THIOTEPA
     Dosage: UNK
  17. TREOSULFAN [Suspect]
     Active Substance: TREOSULFAN
     Indication: Allogenic stem cell transplantation
     Dosage: UNK
  18. TREOSULFAN [Suspect]
     Active Substance: TREOSULFAN
     Dosage: UNK
     Route: 065
  19. TREOSULFAN [Suspect]
     Active Substance: TREOSULFAN
     Dosage: UNK
     Route: 065
  20. TREOSULFAN [Suspect]
     Active Substance: TREOSULFAN
     Dosage: UNK
  21. SIROLIMUS [Suspect]
     Active Substance: SIROLIMUS
     Indication: Prophylaxis against graft versus host disease
     Dosage: UNK
  22. SIROLIMUS [Suspect]
     Active Substance: SIROLIMUS
     Dosage: UNK
     Route: 065
  23. SIROLIMUS [Suspect]
     Active Substance: SIROLIMUS
     Dosage: UNK
     Route: 065
  24. SIROLIMUS [Suspect]
     Active Substance: SIROLIMUS
     Dosage: UNK

REACTIONS (2)
  - Graft versus host disease in skin [Unknown]
  - Drug ineffective [Unknown]
